FAERS Safety Report 21088162 (Version 1)
Quarter: 2022Q3

REPORT INFORMATION
  Report Type: Spontaneous
  Country: PL (occurrence: PL)
  Receive Date: 20220715
  Receipt Date: 20220715
  Transmission Date: 20221027
  Serious: Yes (Other)
  Sender: FDA-Public Use
  Company Number: PL-KRKA-PL2022K08481LIT

PATIENT
  Age: 68 Year
  Sex: Male

DRUGS (3)
  1. SILDENAFIL [Interacting]
     Active Substance: SILDENAFIL
     Indication: Erectile dysfunction
     Dosage: 50 MILLIGRAM, TOTAL (50 MG, SINGLE DOSE)
     Route: 065
  2. HYDROCHLOROTHIAZIDE\VALSARTAN [Interacting]
     Active Substance: HYDROCHLOROTHIAZIDE\VALSARTAN
     Indication: Product used for unknown indication
     Dosage: UNK
     Route: 065
  3. DOXAZOSIN [Interacting]
     Active Substance: DOXAZOSIN MESYLATE
     Indication: Benign prostatic hyperplasia
     Dosage: 4 MILLIGRAM, QD (4 MG, PER DAY)
     Route: 065

REACTIONS (5)
  - Erectile dysfunction [Unknown]
  - Limb discomfort [Unknown]
  - Benign prostatic hyperplasia [Unknown]
  - Oedema peripheral [Unknown]
  - Drug interaction [Unknown]
